FAERS Safety Report 8436110-1 (Version None)
Quarter: 2012Q2

REPORT INFORMATION
  Report Type: 
  Country: None (occurrence: None)
  Receive Date: 20120614
  Receipt Date: 20120612
  Transmission Date: 20120825
  Serious: Yes (Other)
  Sender: FDA-Public Use
  Company Number: PHEH2012US011826

PATIENT
  Sex: Male

DRUGS (7)
  1. DIOVAN [Suspect]
     Dosage: 320 MG, QD
  2. CRESTOR [Concomitant]
     Dosage: 20 MG, UNK
  3. METFORMIN HCL [Concomitant]
     Dosage: 500 MG, UNK
  4. ISOSORBIDE DINITRATE [Concomitant]
     Dosage: 60 MG, UNK
  5. PLAVIX [Concomitant]
     Dosage: 75 MG, UNK
  6. TOPROL-XL [Concomitant]
     Dosage: 100 MG, UNK
  7. RANEXA [Concomitant]
     Dosage: 500 MG, UNK

REACTIONS (1)
  - MYOCARDIAL INFARCTION [None]
